FAERS Safety Report 4277869-7 (Version None)
Quarter: 2004Q1

REPORT INFORMATION
  Report Type: 
  Country: None (occurrence: None)
  Receive Date: 20040123
  Receipt Date: 20040112
  Transmission Date: 20041129
  Serious: Yes (Other)
  Sender: FDA-Public Use
  Company Number: US-BRISTOL-MYERS SQUIBB COMPANY-12482527

PATIENT
  Age: 42 Year
  Sex: Female

DRUGS (7)
  1. SERZONE [Suspect]
     Indication: DEPRESSION
     Dosage: STOPPED MAR2000, STARTED 100MG TID-HS 8-4-00, STOPPED SEPT2000 400MGQD, STARTED APR2001 200MG BID
     Route: 048
     Dates: end: 20020201
  2. KLONOPIN [Concomitant]
  3. LEVOTHROID [Concomitant]
  4. REMERON [Concomitant]
  5. PAXIL [Concomitant]
  6. XENICAL [Concomitant]
  7. MULTI-VITAMIN [Concomitant]

REACTIONS (19)
  - ABDOMINAL PAIN LOWER [None]
  - ALANINE AMINOTRANSFERASE INCREASED [None]
  - ARTHRALGIA [None]
  - ASTHENIA [None]
  - ATAXIA [None]
  - BLOOD ALKALINE PHOSPHATASE INCREASED [None]
  - CELLULITIS [None]
  - CONSTIPATION [None]
  - DIARRHOEA [None]
  - DIZZINESS [None]
  - DRUG INEFFECTIVE [None]
  - GENITAL PRURITUS FEMALE [None]
  - HAEMATOCHEZIA [None]
  - HAEMORRHOIDS [None]
  - MENSTRUATION IRREGULAR [None]
  - MYALGIA [None]
  - PANIC ATTACK [None]
  - SOMNOLENCE [None]
  - TOOTHACHE [None]
